FAERS Safety Report 14138222 (Version 2)
Quarter: 2017Q4

REPORT INFORMATION
  Report Type: Report from Study
  Country: CO (occurrence: CO)
  Receive Date: 20171027
  Receipt Date: 20171027
  Transmission Date: 20180321
  Serious: Yes (Other)
  Sender: FDA-Public Use
  Company Number: PHHY2015CO132678

PATIENT
  Age: 67 Year
  Sex: Male
  Weight: 86 kg

DRUGS (4)
  1. LOSARTAN. [Suspect]
     Active Substance: LOSARTAN
     Indication: PRODUCT USED FOR UNKNOWN INDICATION
     Route: 065
  2. HYDROCHLOROTHIAZIDE. [Concomitant]
     Active Substance: HYDROCHLOROTHIAZIDE
     Indication: PRODUCT USED FOR UNKNOWN INDICATION
     Route: 065
  3. REVOLADE [Suspect]
     Active Substance: ELTROMBOPAG
     Indication: IMMUNE THROMBOCYTOPENIC PURPURA
     Dosage: 25 MG, BID (INTERMEDIATE DAY)
     Route: 048
     Dates: start: 20150526
  4. METFORMIN [Suspect]
     Active Substance: METFORMIN HYDROCHLORIDE
     Indication: PRODUCT USED FOR UNKNOWN INDICATION
     Route: 065

REACTIONS (9)
  - Squamous cell carcinoma [Unknown]
  - Blood glucose increased [Unknown]
  - Urinary tract infection [Unknown]
  - Feeling abnormal [Unknown]
  - Drug ineffective [Unknown]
  - Acne [Unknown]
  - Pyrexia [Unknown]
  - Incorrect dose administered [Unknown]
  - Platelet count decreased [Recovered/Resolved]

NARRATIVE: CASE EVENT DATE: 20161020
